FAERS Safety Report 6249279-4 (Version None)
Quarter: 2009Q2

REPORT INFORMATION
  Report Type: 
  Country: None (occurrence: None)
  Receive Date: 20090629
  Receipt Date: 20090306
  Transmission Date: 20091009
  Serious: No
  Sender: FDA-Public Use
  Company Number: US-BRISTOL-MYERS SQUIBB COMPANY-14533863

PATIENT
  Age: 47 Year
  Sex: Male

DRUGS (4)
  1. SPRYCEL [Suspect]
     Indication: SARCOMA
     Dosage: 1ST DOSE
  2. SPRYCEL [Suspect]
     Indication: CHRONIC MYELOID LEUKAEMIA
     Dosage: 1ST DOSE
  3. HYDROMORPHONE [Concomitant]
  4. LOVENOX [Concomitant]

REACTIONS (2)
  - SWELLING [None]
  - URTICARIA [None]
